FAERS Safety Report 5729069-9 (Version None)
Quarter: 2008Q2

REPORT INFORMATION
  Report Type: 
  Country: None (occurrence: None)
  Receive Date: 20080506
  Receipt Date: 20080501
  Transmission Date: 20081010
  Serious: No
  Sender: FDA-Public Use
  Company Number: JP-BAXTER-2008BH004553

PATIENT
  Sex: Male
  Weight: 50 kg

DRUGS (2)
  1. FEIBA VH IMMUNO [Suspect]
     Indication: FACTOR VIII INHIBITION
     Dosage: DOSE UNIT:UNITS PER KILOGRAM
     Route: 042
     Dates: start: 20080422, end: 20080424
  2. FEIBA VH IMMUNO [Suspect]
     Dosage: DOSE UNIT:UNITS PER KILOGRAM
     Route: 042
     Dates: start: 20080425, end: 20080427

REACTIONS (1)
  - LIVER DISORDER [None]
